FAERS Safety Report 4297190-0 (Version None)
Quarter: 2004Q1

REPORT INFORMATION
  Report Type: 
  Country: None (occurrence: None)
  Receive Date: 20040218
  Receipt Date: 20040121
  Transmission Date: 20041129
  Serious: Yes (Death, Hospitalization)
  Sender: FDA-Public Use
  Company Number: US-BRISTOL-MYERS SQUIBB COMPANY-12483343

PATIENT
  Age: 64 Year
  Sex: Female
  Weight: 81 kg

DRUGS (5)
  1. GLUCOPHAGE XR [Suspect]
     Indication: DIABETES MELLITUS
     Dosage: INITIALLY STARTED ON 1000MG TWICE DAILY UNTIL OCT-2003
     Route: 048
     Dates: start: 19991201, end: 20031201
  2. PREMARIN [Concomitant]
  3. ZYRTEC [Concomitant]
  4. ACTOS [Concomitant]
  5. GLUCOTROL XL [Concomitant]

REACTIONS (3)
  - CHEST PAIN [None]
  - DEATH [None]
  - SEPSIS [None]
